FAERS Safety Report 4475345-X (Version None)
Quarter: 2004Q4

REPORT INFORMATION
  Report Type: 
  Country: None (occurrence: None)
  Receive Date: 20041014
  Receipt Date: 20041014
  Transmission Date: 20050328
  Serious: Yes (Hospitalization)
  Sender: FDA-Public Use
  Company Number: None

PATIENT
  Age: 63 Year
  Sex: Male

DRUGS (1)
  1. AMIODARONE 200 MG [Suspect]
     Indication: ATRIAL FIBRILLATION
     Dosage: 400 MG PO TID
     Route: 048
     Dates: start: 20040201, end: 20040801

REACTIONS (2)
  - ATRIAL FIBRILLATION [None]
  - DYSPNOEA [None]
